FAERS Safety Report 22146131 (Version 1)
Quarter: 2023Q1

REPORT INFORMATION
  Report Type: Report from Study
  Country: DE (occurrence: DE)
  Receive Date: 20230328
  Receipt Date: 20230328
  Transmission Date: 20230418
  Serious: Yes (Death, Hospitalization, Other)
  Sender: FDA-Public Use
  Company Number: DE-ACTELION-A-CH2019-192764

PATIENT
  Age: 72 Year
  Sex: Male
  Weight: 97 kg

DRUGS (32)
  1. UPTRAVI [Suspect]
     Active Substance: SELEXIPAG
     Indication: Pulmonary arterial hypertension
     Dosage: 200 MCG, BID
     Route: 048
     Dates: start: 20190415, end: 20190429
  2. UPTRAVI [Suspect]
     Active Substance: SELEXIPAG
     Dosage: 400 MCG, QD
     Route: 048
     Dates: start: 20190228, end: 20190312
  3. UPTRAVI [Suspect]
     Active Substance: SELEXIPAG
     Dosage: 800 MCG, QD
     Route: 048
     Dates: start: 20190429, end: 20190501
  4. UPTRAVI [Suspect]
     Active Substance: SELEXIPAG
     Dosage: 400 MCG, QD?THERAPY END DATE 18/JAN/2020
     Route: 048
     Dates: start: 20190501
  5. OPSUMIT [Suspect]
     Active Substance: MACITENTAN
     Indication: Pulmonary arterial hypertension
     Dosage: 10 MG, QD?THERAPY END DATE 18/JAN/2020
     Route: 048
     Dates: start: 201603
  6. SILDENAFIL [Concomitant]
     Active Substance: SILDENAFIL
     Indication: Pulmonary arterial hypertension
     Dosage: 40 MG, QD?THERAPY END DATE 18/JAN/2020
     Dates: start: 201707
  7. ENOXAPARIN SODIUM [Concomitant]
     Active Substance: ENOXAPARIN SODIUM
     Indication: Prophylaxis
     Dosage: UNK
     Route: 058
     Dates: start: 20190507, end: 20190531
  8. ENOXAPARIN SODIUM [Concomitant]
     Active Substance: ENOXAPARIN SODIUM
     Dosage: UNK?THERAPY END DATE 18/JAN/2020
     Route: 058
     Dates: start: 20200116
  9. ENOXAPARIN SODIUM [Concomitant]
     Active Substance: ENOXAPARIN SODIUM
     Dosage: UNK
     Route: 058
     Dates: start: 20191209, end: 20191210
  10. FERROUS GLYCINE SULFATE [Concomitant]
     Active Substance: FERROUS GLYCINE SULFATE
     Indication: Surgery
     Dosage: UNK
     Route: 048
     Dates: start: 20190529, end: 20190602
  11. LISINOPRIL [Concomitant]
     Active Substance: LISINOPRIL
     Indication: Hypertension
     Dosage: UNK
     Route: 048
     Dates: start: 2009, end: 201902
  12. PANTOPRAZOLE [Concomitant]
     Active Substance: PANTOPRAZOLE
     Indication: Prophylaxis
     Dosage: UNK
     Route: 048
     Dates: start: 2018, end: 20200116
  13. METAMIZOLE [Concomitant]
     Active Substance: METAMIZOLE
     Indication: Pain
     Dosage: UNK
     Route: 048
     Dates: start: 2010, end: 20200116
  14. ALLOPURINOL [Concomitant]
     Active Substance: ALLOPURINOL
     Indication: Gout
     Dosage: THERAPY END DATE 18/JAN/2020
     Route: 048
     Dates: start: 2014
  15. MAGNESIUM [Concomitant]
     Active Substance: MAGNESIUM
     Indication: Renal failure
     Dosage: UNK
     Route: 048
     Dates: start: 2015, end: 20190327
  16. XIPAMIDE [Concomitant]
     Active Substance: XIPAMIDE
     Indication: Pulmonary arterial hypertension
     Dosage: UNK UNK, PRN
     Route: 048
     Dates: start: 2010, end: 20200117
  17. TORSEMIDE [Concomitant]
     Active Substance: TORSEMIDE
     Indication: Pulmonary arterial hypertension
     Dosage: UNK UNK, PRN
     Route: 048
     Dates: start: 2010, end: 20200117
  18. POTASSIUM [Concomitant]
     Active Substance: POTASSIUM
     Indication: Prophylaxis
     Dosage: UNK
     Route: 048
     Dates: start: 2014
  19. DOXAZOSIN [Concomitant]
     Active Substance: DOXAZOSIN MESYLATE
     Indication: Benign prostatic hyperplasia
     Dosage: UNK
     Route: 048
     Dates: start: 2011, end: 2019
  20. CHOLECALCIFEROL [Concomitant]
     Active Substance: CHOLECALCIFEROL
     Indication: Renal failure
     Dosage: UNK
     Route: 048
     Dates: start: 2015, end: 20200113
  21. CALCIUM GLUCONATE [Concomitant]
     Active Substance: CALCIUM GLUCONATE
     Indication: Renal failure
     Dosage: UNK
     Route: 048
     Dates: start: 2015, end: 20190916
  22. BISOPROLOL [Concomitant]
     Active Substance: BISOPROLOL
     Indication: Hypertension
     Dosage: THERAPY END DATE 18/JAN/2020
     Route: 048
     Dates: start: 2009
  23. MARCUMAR [Concomitant]
     Active Substance: PHENPROCOUMON
     Indication: Atrial fibrillation
     Dosage: UNK
     Route: 048
     Dates: start: 2010, end: 20200117
  24. LEVOTHYROXINE SODIUM [Concomitant]
     Active Substance: LEVOTHYROXINE SODIUM
     Indication: Thyroidectomy
     Dosage: THERAPY END DATE 18/JAN/2020
     Route: 048
     Dates: start: 2015
  25. RENAGEL [SEVELAMER CARBONATE] [Concomitant]
     Indication: Renal failure
     Dosage: UNK
     Dates: start: 201911, end: 201912
  26. RENAGEL [SEVELAMER CARBONATE] [Concomitant]
     Indication: Hyperphosphataemia
     Dosage: UNK
     Dates: start: 20200114, end: 20200115
  27. CEFTRIAXONE [Concomitant]
     Active Substance: CEFTRIAXONE
     Indication: Urinary tract infection
     Dosage: UNK
     Route: 042
     Dates: start: 20200112, end: 20200116
  28. CEFTRIAXONE [Concomitant]
     Active Substance: CEFTRIAXONE
     Dosage: UNK
     Route: 042
     Dates: start: 20191204, end: 20191213
  29. SILODOSIN [Concomitant]
     Active Substance: SILODOSIN
     Indication: Benign prostatic hyperplasia
     Dosage: UNK
     Route: 048
     Dates: start: 20200112, end: 20200115
  30. NEXIUM I.V. [Concomitant]
     Active Substance: ESOMEPRAZOLE SODIUM
     Indication: Prophylaxis
     Dosage: THERAPY END DATE 18/JAN/2020
     Route: 048
     Dates: start: 20200117
  31. ALBUTEROL SULFATE\IPRATROPIUM BROMIDE [Concomitant]
     Active Substance: ALBUTEROL SULFATE\IPRATROPIUM BROMIDE
     Dosage: THERAPY END DATE 18/JAN/2020
     Route: 055
     Dates: start: 20200116
  32. NOREPINEPHRINE HYDROCHLORIDE, (+/-)- [Concomitant]
     Active Substance: NOREPINEPHRINE HYDROCHLORIDE, (+/-)-
     Indication: Hypotension
     Dosage: UNK
     Route: 042
     Dates: start: 20200116, end: 20200116

REACTIONS (37)
  - General physical health deterioration [Fatal]
  - Dyspnoea [Fatal]
  - Multiple organ dysfunction syndrome [Fatal]
  - Incarcerated inguinal hernia [Recovered/Resolved]
  - Inguinal hernia repair [Unknown]
  - Peritoneal dialysis complication [Recovered/Resolved]
  - Catheter management [Recovered/Resolved]
  - Renal impairment [Not Recovered/Not Resolved]
  - Peritoneal dialysis [Unknown]
  - International normalised ratio increased [Recovered/Resolved]
  - Metabolic acidosis [Unknown]
  - Pancreatitis acute [Recovered/Resolved]
  - Inflammation [Recovered/Resolved]
  - Abdominal pain [Recovered/Resolved]
  - Dialysis related complication [Recovered/Resolved]
  - Urinary tract infection [Not Recovered/Not Resolved]
  - Enterobacter test positive [Not Recovered/Not Resolved]
  - Enterococcus test positive [Not Recovered/Not Resolved]
  - Corynebacterium test positive [Not Recovered/Not Resolved]
  - Staphylococcus test positive [Not Recovered/Not Resolved]
  - Urosepsis [Not Recovered/Not Resolved]
  - End stage renal disease [Unknown]
  - Renal failure [Unknown]
  - Transfusion [Unknown]
  - Anaemia [Recovering/Resolving]
  - Hypotension [Recovering/Resolving]
  - Rash [Unknown]
  - Oedema peripheral [Unknown]
  - Fatigue [Unknown]
  - Genital infection [Not Recovered/Not Resolved]
  - Balanoposthitis [Not Recovered/Not Resolved]
  - Genital erythema [Not Recovered/Not Resolved]
  - Confusional state [Not Recovered/Not Resolved]
  - Arthralgia [Recovered/Resolved]
  - Hyperphosphataemia [Not Recovered/Not Resolved]
  - Blood alkaline phosphatase increased [Unknown]
  - Hypokalaemia [Unknown]

NARRATIVE: CASE EVENT DATE: 20190228
